FAERS Safety Report 7188812 (Version 4)
Quarter: 2013Q1

REPORT INFORMATION
  Report Type: Spontaneous
  Country: US (occurrence: US)
  Receive Date: 20091125
  Receipt Date: 20130306
  Transmission Date: 20140127
  Serious: Yes (Hospitalization)
  Sender: FDA-Public Use
  Company Number: US-BIOGENIDEC-2009BI038104

PATIENT
  Age: 79 Year
  Sex: Female

DRUGS (1)
  1. AVONEX [Suspect]
     Indication: MULTIPLE SCLEROSIS
     Route: 030
     Dates: start: 20011204

REACTIONS (4)
  - Lumbar spinal stenosis [Recovered/Resolved]
  - Spinal laminectomy [Recovered/Resolved]
  - Spinal decompression [Recovered/Resolved]
  - Pain in extremity [Not Recovered/Not Resolved]
